FAERS Safety Report 4834750-X (Version None)
Quarter: 2005Q4

REPORT INFORMATION
  Report Type: 
  Country: None (occurrence: None)
  Receive Date: 20051122
  Receipt Date: 20050822
  Transmission Date: 20060501
  Serious: No
  Sender: FDA-Public Use
  Company Number: US-BRISTOL-MYERS SQUIBB COMPANY-13085113

PATIENT
  Age: 69 Year
  Sex: Female
  Weight: 57 kg

DRUGS (3)
  1. PRAVACHOL [Suspect]
     Indication: BLOOD CHOLESTEROL INCREASED
     Dates: end: 20041201
  2. SYNTHROID [Concomitant]
  3. MICARDIS [Concomitant]

REACTIONS (2)
  - MUSCLE ENZYME INCREASED [None]
  - MUSCLE SPASMS [None]
